FAERS Safety Report 17669439 (Version 2)
Quarter: 2020Q2

REPORT INFORMATION
  Report Type: Report from Study
  Country: BR (occurrence: BR)
  Receive Date: 20200415
  Receipt Date: 20200427
  Transmission Date: 20200713
  Serious: Yes (Hospitalization, Disabling, Other)
  Sender: FDA-Public Use
  Company Number: BR-ORION CORPORATION ORION PHARMA-ENTC2020-0096

PATIENT
  Age: 96 Year
  Sex: Female
  Weight: 60 kg

DRUGS (11)
  1. STALEVO [Suspect]
     Active Substance: CARBIDOPA\ENTACAPONE\LEVODOPA
     Indication: DEMENTIA ALZHEIMER^S TYPE
     Dosage: STRENGTH: 100/25/200 MG
     Route: 048
     Dates: start: 200601
  2. OMEPRAZOLE. [Concomitant]
     Active Substance: OMEPRAZOLE
     Route: 065
  3. HIDANTAL [Concomitant]
     Active Substance: PHENYTOIN SODIUM
     Route: 065
     Dates: start: 2006
  4. NATRILIX [Concomitant]
     Active Substance: INDAPAMIDE
     Route: 065
  5. ADEFORTE [Concomitant]
     Active Substance: .ALPHA.-TOCOPHEROL, DL-\CHOLECALCIFEROL\VITAMIN A PALMITATE
     Route: 065
  6. MIRTAZAPINE. [Concomitant]
     Active Substance: MIRTAZAPINE
     Route: 065
  7. SEROQUEL [Concomitant]
     Active Substance: QUETIAPINE FUMARATE
     Route: 065
  8. MICARDIS [Concomitant]
     Active Substance: TELMISARTAN
     Route: 065
  9. ZIDER [Concomitant]
     Active Substance: MEMANTINE HYDROCHLORIDE
     Route: 065
  10. MOTILIUM [Concomitant]
     Active Substance: DOMPERIDONE
     Route: 065
  11. EPEZ [Concomitant]
     Active Substance: DONEPEZIL HYDROCHLORIDE
     Route: 065

REACTIONS (13)
  - Wrong technique in product usage process [Unknown]
  - Aneurysm [Unknown]
  - Throat clearing [Unknown]
  - Therapeutic response unexpected [Unknown]
  - Blindness [Unknown]
  - Ischaemia [Recovered/Resolved]
  - Parkinson^s disease [Unknown]
  - Patient-device incompatibility [Unknown]
  - Product use in unapproved indication [Unknown]
  - Fall [Recovered/Resolved]
  - Femur fracture [Recovered/Resolved]
  - Deafness [Unknown]
  - Dementia Alzheimer^s type [Unknown]

NARRATIVE: CASE EVENT DATE: 2011
